FAERS Safety Report 9646243 (Version 1)
Quarter: 2013Q4

REPORT INFORMATION
  Report Type: Spontaneous
  Country: FR (occurrence: None)
  Receive Date: 20131024
  Receipt Date: 20131024
  Transmission Date: 20140711
  Serious: Yes (Hospitalization)
  Sender: FDA-Public Use
  Company Number: 1919988

PATIENT
  Age: 62 Year
  Sex: Female

DRUGS (6)
  1. CARBOPLATIN [Suspect]
     Indication: BREAST CANCER
     Route: 041
     Dates: start: 20100331, end: 20100331
  2. PACLITAXEL EBEWE [Concomitant]
  3. POLARAMINE [Concomitant]
  4. METHYLPREDNISOLONE MERCK [Concomitant]
  5. ZOPHREN [Concomitant]
  6. RANIPLEX [Concomitant]

REACTIONS (4)
  - Hyperhidrosis [None]
  - Hot flush [None]
  - Malaise [None]
  - Blood pressure decreased [None]
